FAERS Safety Report 6785702-4 (Version None)
Quarter: 2010Q2

REPORT INFORMATION
  Report Type: 
  Country: None (occurrence: None)
  Receive Date: 20100622
  Receipt Date: 20100622
  Transmission Date: 20101027
  Serious: No
  Sender: FDA-Public Use
  Company Number: None

PATIENT
  Age: 13 Year
  Sex: Female

DRUGS (2)
  1. TRILEPTAL [Suspect]
     Indication: EPILEPSY
     Dosage: 2 1/2 TABS 2 X DAY
     Dates: start: 20060101
  2. TRILEPTAL [Suspect]
     Indication: EPILEPSY
     Dosage: 2 1/2 TABS 2 X DAY
     Dates: start: 20090601

REACTIONS (1)
  - CONVULSION [None]
